FAERS Safety Report 4397331-0 (Version None)
Quarter: 2004Q3

REPORT INFORMATION
  Report Type: 
  Country: None (occurrence: None)
  Receive Date: 20040714
  Receipt Date: 20040702
  Transmission Date: 20050211
  Serious: Yes (Other)
  Sender: FDA-Public Use
  Company Number: 12621926

PATIENT
  Age: 39 Year
  Sex: Female

DRUGS (3)
  1. LAMIVUDINE [Suspect]
     Indication: HIV INFECTION
     Dates: start: 20040527
  2. STAVUDINE [Suspect]
     Indication: HIV INFECTION
     Dates: start: 20040527
  3. NEVIRAPINE [Suspect]
     Indication: HIV INFECTION
     Dates: start: 20040527

REACTIONS (7)
  - DERMATITIS ALLERGIC [None]
  - ERYTHEMA [None]
  - HEADACHE [None]
  - NAUSEA [None]
  - ORAL PAIN [None]
  - PRURITUS [None]
  - SWELLING FACE [None]
